FAERS Safety Report 7509100-0 (Version None)
Quarter: 2011Q2

REPORT INFORMATION
  Report Type: 
  Country: None (occurrence: None)
  Receive Date: 20110519
  Receipt Date: 20110511
  Transmission Date: 20111010
  Serious: Yes (Hospitalization)
  Sender: FDA-Public Use
  Company Number: WAES 1008USA01594

PATIENT
  Age: 57 Year
  Sex: Female

DRUGS (11)
  1. PANTAZOL [Concomitant]
  2. ACYCLOVIR [Concomitant]
  3. LASIX [Concomitant]
  4. DIRPGESIC [Concomitant]
  5. KEVATRIL [Concomitant]
  6. CAP VORINOSTAT [Suspect]
     Indication: MULTIPLE MYELOMA
     Dosage: 200 MG, DAILY, PO
     Route: 048
     Dates: start: 20100202, end: 20100702
  7. BORTEZOMIB [Suspect]
     Indication: MULTIPLE MYELOMA
     Dosage: 1.0 MG/M2, PO
     Route: 048
     Dates: start: 20100202, end: 20100709
  8. DEXAMETHASONE [Suspect]
     Indication: MULTIPLE MYELOMA
     Dosage: 20 MG, DAILY, PO
     Route: 048
     Dates: start: 20100615, end: 20100710
  9. METOPROLOL SUCCINATE [Concomitant]
  10. ZOMETA [Concomitant]
  11. TORSEMIDE [Concomitant]

REACTIONS (6)
  - TREATMENT NONCOMPLIANCE [None]
  - APHASIA [None]
  - GLIOSIS [None]
  - DEHYDRATION [None]
  - HEAT STROKE [None]
  - ALTERED STATE OF CONSCIOUSNESS [None]
